FAERS Safety Report 18405710 (Version 5)
Quarter: 2021Q3

REPORT INFORMATION
  Report Type: Spontaneous
  Country: GB (occurrence: NL)
  Receive Date: 20201020
  Receipt Date: 20210909
  Transmission Date: 20211014
  Serious: Yes (Other)
  Sender: FDA-Public Use
  Company Number: GB-MYLANLABS-2020M1087784

PATIENT
  Age: 43 Year
  Sex: Male
  Weight: 101 kg

DRUGS (13)
  1. DOCETAXEL. [Suspect]
     Active Substance: DOCETAXEL
     Indication: OESOPHAGEAL SQUAMOUS CELL CARCINOMA
     Dosage: UNK
     Route: 065
     Dates: start: 201409, end: 201501
  2. FLUOROURACIL. [Suspect]
     Active Substance: FLUOROURACIL
     Indication: OESOPHAGEAL SQUAMOUS CELL CARCINOMA
     Dosage: UNK
     Route: 065
     Dates: start: 201409, end: 201501
  3. FLUOROURACIL. [Suspect]
     Active Substance: FLUOROURACIL
     Dosage: UNK
     Route: 065
     Dates: start: 202003, end: 202009
  4. FLUOROURACIL. [Suspect]
     Active Substance: FLUOROURACIL
     Dosage: 800 MILLIGRAM, QD
     Route: 065
     Dates: start: 20210217
  5. CARBOPLATIN. [Suspect]
     Active Substance: CARBOPLATIN
     Indication: OESOPHAGEAL SQUAMOUS CELL CARCINOMA
     Dosage: UNK
     Route: 065
     Dates: start: 201905, end: 201906
  6. FOLINIC ACID [Suspect]
     Active Substance: LEUCOVORIN
     Indication: OESOPHAGEAL SQUAMOUS CELL CARCINOMA
     Dosage: UNK
     Route: 065
     Dates: start: 202003, end: 202009
  7. FOLINIC ACID [Suspect]
     Active Substance: LEUCOVORIN
     Dosage: UNK
     Route: 065
     Dates: start: 202003, end: 202009
  8. CISPLATIN. [Suspect]
     Active Substance: CISPLATIN
     Indication: OESOPHAGEAL SQUAMOUS CELL CARCINOMA
     Dosage: UNK
     Route: 065
     Dates: start: 201409, end: 201501
  9. OXALIPLATIN. [Suspect]
     Active Substance: OXALIPLATIN
     Dosage: 800 MILLIGRAM, QD
     Dates: start: 20210217
  10. CALCIUM FOLINATE [Suspect]
     Active Substance: LEUCOVORIN CALCIUM
     Indication: OESOPHAGEAL SQUAMOUS CELL CARCINOMA
     Dosage: UNK
     Route: 065
     Dates: start: 202003, end: 202009
  11. PACLITAXEL. [Suspect]
     Active Substance: PACLITAXEL
     Indication: OESOPHAGEAL SQUAMOUS CELL CARCINOMA
     Dosage: UNK
     Route: 065
     Dates: start: 201905, end: 201906
  12. FOLFOX [Suspect]
     Active Substance: FLUOROURACIL\LEUCOVORIN CALCIUM\OXALIPLATIN
     Indication: OESOPHAGEAL SQUAMOUS CELL CARCINOMA
     Dosage: UNK
     Route: 065
     Dates: start: 202003, end: 202009
  13. OXALIPLATIN. [Suspect]
     Active Substance: OXALIPLATIN
     Indication: OESOPHAGEAL SQUAMOUS CELL CARCINOMA
     Dosage: UNK
     Route: 065
     Dates: start: 202003, end: 202009

REACTIONS (4)
  - Off label use [Unknown]
  - Product use in unapproved indication [Unknown]
  - Malignant neoplasm progression [Unknown]
  - Neuropathy peripheral [Not Recovered/Not Resolved]

NARRATIVE: CASE EVENT DATE: 2020
